FAERS Safety Report 5160832-1 (Version None)
Quarter: 2006Q4

REPORT INFORMATION
  Report Type: 
  Country: None (occurrence: None)
  Receive Date: 20061121
  Receipt Date: 20061110
  Transmission Date: 20070319
  Serious: Yes (Hospitalization)
  Sender: FDA-Public Use
  Company Number: 056-C5013-06110593

PATIENT
  Age: 57 Year
  Sex: Female
  Weight: 60 kg

DRUGS (1)
  1. CC-5013 (LENALIDOMIDE) (CAPSULES) [Suspect]
     Indication: MULTIPLE MYELOMA
     Dosage: 15 MG, 1 IN 1 D, ORAL
     Route: 048
     Dates: start: 20060808

REACTIONS (1)
  - FEBRILE BONE MARROW APLASIA [None]
